FAERS Safety Report 19167704 (Version 1)
Quarter: 2021Q2

REPORT INFORMATION
  Report Type: Spontaneous
  Country: US (occurrence: US)
  Receive Date: 20210422
  Receipt Date: 20210422
  Transmission Date: 20210717
  Serious: Yes (Hospitalization, Other)
  Sender: FDA-Public Use
  Company Number: US-SA-2021SA132655

PATIENT
  Age: 86 Year
  Sex: Male

DRUGS (1)
  1. DUPIXENT [Suspect]
     Active Substance: DUPILUMAB
     Indication: VARICOPHLEBITIS

REACTIONS (5)
  - Wrist fracture [Unknown]
  - Joint injury [Unknown]
  - Fall [Unknown]
  - Upper limb fracture [Unknown]
  - Product use in unapproved indication [Unknown]
